FAERS Safety Report 8616653-8 (Version None)
Quarter: 2012Q3

REPORT INFORMATION
  Report Type: 
  Country: None (occurrence: None)
  Receive Date: 20120823
  Receipt Date: 20120815
  Transmission Date: 20120928
  Serious: Yes (Death, Hospitalization, Other)
  Sender: FDA-Public Use
  Company Number: US-BAYER-2012-056429

PATIENT
  Age: 55 Year
  Sex: Male

DRUGS (9)
  1. LORAZEPAM [Concomitant]
     Dosage: 1 MG, BID
  2. DIPHENOXYLATE HCL AND ATROPINE SULFATE [Concomitant]
     Indication: DIARRHOEA
     Dosage: 0.025/2.5 MG, QID PRN
  3. LORTAB [Concomitant]
     Dosage: 10 MG Q4-6 HOURS, PRN
  4. LASIX [Concomitant]
     Dosage: 80 MG, BID
  5. ALBUTEROL [Concomitant]
     Dosage: UNK UNK, PRN
  6. ALDACTONE [Concomitant]
     Dosage: 50 MG, BID
  7. NEXAVAR [Suspect]
     Indication: HEPATIC NEOPLASM MALIGNANT
     Dosage: 200 MG, BID
     Dates: start: 20120525, end: 20120605
  8. NEXAVAR [Suspect]
     Dosage: 400 MG, BID
     Dates: start: 20120601
  9. PROTONIX [Concomitant]
     Dosage: 40 MG, QD

REACTIONS (23)
  - FATIGUE [None]
  - MENTAL STATUS CHANGES [None]
  - CHILLS [None]
  - HEPATIC ENCEPHALOPATHY [None]
  - NAUSEA [None]
  - HYPONATRAEMIA [None]
  - LOSS OF CONSCIOUSNESS [None]
  - PYREXIA [None]
  - JAUNDICE [None]
  - PLEURAL EFFUSION [None]
  - RASH [None]
  - DEHYDRATION [None]
  - RENAL FAILURE ACUTE [None]
  - URINARY TRACT INFECTION [None]
  - HYPERKALAEMIA [None]
  - BACTERAEMIA [None]
  - AMMONIA INCREASED [None]
  - ABDOMINAL PAIN [None]
  - ANAEMIA [None]
  - MALNUTRITION [None]
  - CHOLANGITIS [None]
  - THROMBOCYTOPENIA [None]
  - DEATH [None]
